FAERS Safety Report 24984701 (Version 1)
Quarter: 2025Q1

REPORT INFORMATION
  Report Type: Report from Study
  Country: IT (occurrence: IT)
  Receive Date: 20250219
  Receipt Date: 20250219
  Transmission Date: 20250409
  Serious: Yes (Hospitalization)
  Sender: ABBVIE
  Company Number: IT-ABBVIE-6138202

PATIENT
  Age: 79 Year
  Sex: Male

DRUGS (1)
  1. VENETOCLAX [Suspect]
     Active Substance: VENETOCLAX
     Indication: Chronic lymphocytic leukaemia
     Route: 048

REACTIONS (5)
  - Bone marrow oedema [Unknown]
  - Hypertension [Unknown]
  - Treatment noncompliance [Unknown]
  - Atrial fibrillation [Unknown]
  - Infection [Unknown]
